FAERS Safety Report 11138203 (Version 1)
Quarter: 2015Q2

REPORT INFORMATION
  Report Type: Spontaneous
  Country: US (occurrence: US)
  Receive Date: 20150526
  Receipt Date: 20150526
  Transmission Date: 20150821
  Serious: No
  Sender: FDA-Public Use
  Company Number: US-VIVUS-2015V1000051

PATIENT
  Sex: Male

DRUGS (3)
  1. FINASTERIDE. [Concomitant]
     Active Substance: FINASTERIDE
  2. LIPID MODIFYING AGENTS [Concomitant]
  3. STENDRA [Suspect]
     Active Substance: AVANAFIL
     Indication: ERECTILE DYSFUNCTION
     Route: 048

REACTIONS (1)
  - Drug effect decreased [Not Recovered/Not Resolved]
